FAERS Safety Report 9555863 (Version 1)
Quarter: 2013Q3

REPORT INFORMATION
  Report Type: Report from Study
  Country: DE (occurrence: DE)
  Receive Date: 20130926
  Receipt Date: 20130926
  Transmission Date: 20140515
  Serious: Yes (Other)
  Sender: FDA-Public Use
  Company Number: DE-ROCHE-1277962

PATIENT
  Age: 46 Year
  Sex: Male
  Weight: 104 kg

DRUGS (13)
  1. PEGASYS [Suspect]
     Indication: CHRONIC HEPATITIS C
     Route: 065
     Dates: start: 2003, end: 2004
  2. PEGASYS [Suspect]
     Route: 065
     Dates: start: 2006, end: 2006
  3. PEGASYS [Suspect]
     Route: 065
  4. RIBAVIRIN [Suspect]
     Indication: CHRONIC HEPATITIS C
     Route: 065
     Dates: start: 2003, end: 2004
  5. RIBAVIRIN [Suspect]
     Route: 065
     Dates: start: 2006, end: 2006
  6. RIBAVIRIN [Suspect]
     Route: 065
  7. RIBAVIRIN [Suspect]
     Route: 065
  8. TELAPREVIR [Suspect]
     Indication: CHRONIC HEPATITIS C
     Route: 065
  9. ASS [Concomitant]
  10. EPROSARTAN [Concomitant]
  11. HYDROCHLOROTHIAZIDE [Concomitant]
  12. INSULIN [Concomitant]
  13. PANTOPRAZOLE [Concomitant]

REACTIONS (3)
  - Somatoform disorder [Unknown]
  - Haemoglobin decreased [Recovering/Resolving]
  - Hepatitis C [Recovered/Resolved]
